FAERS Safety Report 5372191-X (Version None)
Quarter: 2007Q2

REPORT INFORMATION
  Report Type: 
  Country: None (occurrence: None)
  Receive Date: 20070627
  Receipt Date: 20070619
  Transmission Date: 20071010
  Serious: Yes (Other)
  Sender: FDA-Public Use
  Company Number: B0428988A

PATIENT
  Sex: Male

DRUGS (2)
  1. LAMICTAL [Suspect]
     Indication: SECONDARY PROGRESSIVE MULTIPLE SCLEROSIS
     Dates: start: 20051201
  2. AIMSPRO [Suspect]
     Dates: start: 20060501

REACTIONS (4)
  - DRUG INTERACTION [None]
  - DYSPHAGIA [None]
  - MULTIPLE SCLEROSIS [None]
  - SPEECH DISORDER [None]
